FAERS Safety Report 14325703 (Version 1)
Quarter: 2017Q4

REPORT INFORMATION
  Report Type: Spontaneous
  Country: US (occurrence: US)
  Receive Date: 20171226
  Receipt Date: 20171226
  Transmission Date: 20180321
  Serious: No
  Sender: FDA-Public Use
  Company Number: US-SA-2017SA127445

PATIENT
  Age: 22 Year
  Sex: Female

DRUGS (1)
  1. THYROGEN [Suspect]
     Active Substance: THYROTROPIN ALFA
     Dosage: FREQUENCY : TWICE
     Route: 030
     Dates: start: 20170710

REACTIONS (1)
  - Exposure during pregnancy [Unknown]
